FAERS Safety Report 4566238-8 (Version None)
Quarter: 2005Q1

REPORT INFORMATION
  Report Type: 
  Country: None (occurrence: None)
  Receive Date: 20050201
  Receipt Date: 20050120
  Transmission Date: 20050727
  Serious: Yes (Other)
  Sender: FDA-Public Use
  Company Number: 200510525US

PATIENT
  Sex: Female

DRUGS (12)
  1. TAXOTERE [Suspect]
     Indication: BREAST CANCER
     Dosage: DOSE: UNK
     Dates: start: 20031215, end: 20040301
  2. ADRIAMYCIN PFS [Concomitant]
     Dates: start: 20031215, end: 20040301
  3. CYTOXAN [Concomitant]
     Dates: start: 20031215, end: 20040301
  4. FOSAMAX [Concomitant]
  5. CALCIUM GLUCONATE [Concomitant]
  6. ZINC [Concomitant]
  7. MAGNESIUM [Concomitant]
  8. PRIMROSE OIL [Concomitant]
  9. VITAMIN E [Concomitant]
  10. FISH OIL [Concomitant]
  11. ROWASA [Concomitant]
     Route: 054
  12. CIPRO [Concomitant]

REACTIONS (3)
  - ARTHRALGIA [None]
  - ASEPTIC NECROSIS BONE [None]
  - MYALGIA [None]
